FAERS Safety Report 5893842-7 (Version None)
Quarter: 2008Q3

REPORT INFORMATION
  Report Type: 
  Country: None (occurrence: None)
  Receive Date: 20080923
  Receipt Date: 20071031
  Transmission Date: 20090109
  Serious: No
  Sender: FDA-Public Use
  Company Number: US-ASTRAZENECA-2007UW25342

PATIENT
  Age: 56 Year
  Sex: Female

DRUGS (4)
  1. SEROQUEL [Suspect]
     Route: 048
     Dates: start: 20040101
  2. SEROQUEL [Suspect]
     Route: 048
  3. LAMICTAL [Concomitant]
     Route: 048
  4. KLONOPIN [Concomitant]
     Route: 048

REACTIONS (10)
  - CHOKING [None]
  - CONSTIPATION [None]
  - DRY MOUTH [None]
  - HEPATIC ENZYME INCREASED [None]
  - NECK MASS [None]
  - NECK PAIN [None]
  - NODULE [None]
  - OROPHARYNGEAL PAIN [None]
  - WEIGHT INCREASED [None]
  - WHITE BLOOD CELL COUNT DECREASED [None]
